FAERS Safety Report 13354992 (Version 1)
Quarter: 2017Q1

REPORT INFORMATION
  Report Type: Spontaneous
  Country: US (occurrence: US)
  Receive Date: 20170321
  Receipt Date: 20170321
  Transmission Date: 20170429
  Serious: Yes (Other)
  Sender: FDA-Public Use
  Company Number: US-JNJFOC-20170310376

PATIENT
  Age: 6 Decade
  Sex: Female

DRUGS (6)
  1. MOTRIN [Suspect]
     Active Substance: IBUPROFEN
     Indication: PAIN
     Dosage: EVERY SIX HOURS AS NEEDED
     Route: 048
     Dates: start: 2012
  2. FLEXERIL [Concomitant]
     Active Substance: CYCLOBENZAPRINE HYDROCHLORIDE
     Indication: PAIN
     Route: 065
     Dates: start: 2012
  3. NEURONTIN [Concomitant]
     Active Substance: GABAPENTIN
     Indication: PAIN
     Route: 065
     Dates: start: 2012
  4. MOTRIN [Suspect]
     Active Substance: IBUPROFEN
     Indication: HEADACHE
     Dosage: EVERY SIX HOURS AS NEEDED
     Route: 048
     Dates: start: 2012
  5. MOTRIN [Suspect]
     Active Substance: IBUPROFEN
     Indication: EUPHORIC MOOD
     Dosage: EVERY SIX HOURS AS NEEDED
     Route: 048
     Dates: start: 2012
  6. MOTRIN [Suspect]
     Active Substance: IBUPROFEN
     Indication: THROAT IRRITATION
     Dosage: EVERY SIX HOURS AS NEEDED
     Route: 048
     Dates: start: 2012

REACTIONS (6)
  - Drug dependence [Recovered/Resolved]
  - Duodenitis [Unknown]
  - Substance abuse [Recovered/Resolved]
  - Drug ineffective [Unknown]
  - Intentional product misuse [Recovered/Resolved]
  - Gastritis [Unknown]
